FAERS Safety Report 12083317 (Version 1)
Quarter: 2016Q1

REPORT INFORMATION
  Report Type: Spontaneous
  Country: US (occurrence: US)
  Receive Date: 20160217
  Receipt Date: 20160217
  Transmission Date: 20160526
  Serious: No
  Sender: FDA-Public Use
  Company Number: US-MYLANLABS-2015M1002958

PATIENT
  Age: 52 Year
  Sex: Female
  Weight: 99.77 kg

DRUGS (2)
  1. EPIPEN [Suspect]
     Active Substance: EPINEPHRINE
     Indication: FOOD ALLERGY
  2. EPIPEN [Suspect]
     Active Substance: EPINEPHRINE
     Indication: RUBBER SENSITIVITY
     Dosage: 0.3 MG, PRN
     Dates: start: 20150202, end: 20150202

REACTIONS (9)
  - Injection site haemorrhage [Recovered/Resolved]
  - Injection site hypoaesthesia [Recovered/Resolved]
  - Injection site pain [Not Recovered/Not Resolved]
  - Accidental exposure to product [Recovered/Resolved]
  - Palpitations [Recovered/Resolved]
  - Expired product administered [Recovered/Resolved]
  - Injection site discolouration [Recovered/Resolved]
  - Injection site swelling [Recovered/Resolved]
  - Tremor [Recovered/Resolved]

NARRATIVE: CASE EVENT DATE: 20150202
